FAERS Safety Report 9181808 (Version 4)
Quarter: 2013Q4

REPORT INFORMATION
  Report Type: Spontaneous
  Country: US (occurrence: US)
  Receive Date: 20130322
  Receipt Date: 20131231
  Transmission Date: 20140711
  Serious: Yes (Hospitalization, Other)
  Sender: FDA-Public Use
  Company Number: US-009507513-1303USA009753

PATIENT
  Sex: Female
  Weight: 72.56 kg

DRUGS (6)
  1. FOSAMAX [Suspect]
     Indication: OSTEOPENIA
     Dosage: 70 MG, QW
     Route: 048
     Dates: end: 200701
  2. FOSAMAX [Suspect]
     Indication: OSTEITIS DEFORMANS
  3. VITAMINS (UNSPECIFIED) [Concomitant]
     Dosage: UNK
     Dates: start: 1960
  4. CALCIUM (UNSPECIFIED) (+) VITAMIN D (UNSPECIFIED) [Concomitant]
     Dosage: 600 MG + 200 UNITS, BID
     Dates: start: 1960
  5. POTASSIUM CHLORIDE [Concomitant]
     Dosage: 8 MEQ, QD
     Dates: start: 1960
  6. HORMONES (UNSPECIFIED) [Concomitant]
     Dosage: UNK
     Dates: start: 1993, end: 2004

REACTIONS (12)
  - Intramedullary rod insertion [Unknown]
  - Leukaemia [Unknown]
  - Hip arthroplasty [Unknown]
  - Cholecystectomy [Unknown]
  - Femur fracture [Unknown]
  - Impaired healing [Unknown]
  - Osteoporosis [Unknown]
  - Vitamin D decreased [Unknown]
  - Blood cholesterol increased [Unknown]
  - Hypertension [Unknown]
  - Oestrogen deficiency [Unknown]
  - Oophorectomy [Unknown]
